FAERS Safety Report 7265246-6 (Version None)
Quarter: 2011Q1

REPORT INFORMATION
  Report Type: 
  Country: None (occurrence: None)
  Receive Date: 20110131
  Receipt Date: 20110120
  Transmission Date: 20110831
  Serious: Yes (Hospitalization, Other)
  Sender: FDA-Public Use
  Company Number: US-SANOFI-AVENTIS-2010SA064903

PATIENT
  Age: 83 Year
  Sex: Male
  Weight: 66.66 kg

DRUGS (9)
  1. ASPIRIN [Suspect]
     Route: 065
  2. PLAVIX [Suspect]
     Indication: PERCUTANEOUS CORONARY INTERVENTION
     Route: 048
     Dates: start: 20100914
  3. COREG [Concomitant]
  4. LASIX [Concomitant]
  5. IMDUR [Concomitant]
     Indication: ANGINA PECTORIS
  6. PRAVACHOL [Concomitant]
  7. PLAVIX [Suspect]
     Indication: CORONARY ARTERY DISEASE
     Route: 048
     Dates: start: 20100914
  8. PLAVIX [Suspect]
     Indication: STENT PLACEMENT
     Route: 048
     Dates: start: 20100914
  9. COUMADIN [Suspect]
     Indication: ATRIAL FIBRILLATION
     Route: 048
     Dates: start: 20021015, end: 20101110

REACTIONS (14)
  - FEELING ABNORMAL [None]
  - CONTUSION [None]
  - CHILLS [None]
  - GASTRITIS [None]
  - NODULE [None]
  - DYSPNOEA [None]
  - HEARING IMPAIRED [None]
  - FEELING COLD [None]
  - HAEMOGLOBIN DECREASED [None]
  - COUGH [None]
  - CHEST PAIN [None]
  - FATIGUE [None]
  - ABDOMINAL DISTENSION [None]
  - INSOMNIA [None]
